FAERS Safety Report 8391370-0 (Version None)
Quarter: 2012Q2

REPORT INFORMATION
  Report Type: 
  Country: None (occurrence: None)
  Receive Date: 20120529
  Receipt Date: 20120521
  Transmission Date: 20120825
  Serious: Yes (Other)
  Sender: FDA-Public Use
  Company Number: US-BAYER-2012-051569

PATIENT
  Age: 18 Year
  Sex: Female
  Weight: 73.923 kg

DRUGS (6)
  1. IBP [Concomitant]
     Dosage: UNK
     Dates: start: 20070702
  2. TYLENOL [Concomitant]
     Dosage: UNK
     Dates: start: 20070702
  3. MOTRIN [Concomitant]
     Indication: COSTOCHONDRITIS
  4. YAZ [Suspect]
  5. SKELAXIN [Concomitant]
     Dosage: 800 MG, TID
     Route: 048
     Dates: start: 20070702
  6. AMOXICILLIN [Concomitant]
     Dosage: 875 MG, BID
     Route: 048
     Dates: start: 20070524

REACTIONS (2)
  - PULMONARY EMBOLISM [None]
  - DEEP VEIN THROMBOSIS [None]
